FAERS Safety Report 16825186 (Version 1)
Quarter: 2019Q3

REPORT INFORMATION
  Report Type: Spontaneous
  Country: SI (occurrence: SI)
  Receive Date: 20190919
  Receipt Date: 20190919
  Transmission Date: 20191005
  Serious: Yes (Other)
  Sender: FDA-Public Use
  Company Number: SI-AMGEN-SVNSP2019152186

PATIENT

DRUGS (1)
  1. REPATHA [Suspect]
     Active Substance: EVOLOCUMAB
     Indication: PRODUCT USED FOR UNKNOWN INDICATION
     Dosage: UNK
     Route: 065

REACTIONS (15)
  - Pruritus [Unknown]
  - Insomnia [Unknown]
  - Influenza like illness [Unknown]
  - Fatigue [Unknown]
  - Rash [Unknown]
  - Sjogren^s syndrome [Not Recovered/Not Resolved]
  - Malaise [Unknown]
  - Myalgia [Unknown]
  - Drug ineffective [Unknown]
  - Arthralgia [Unknown]
  - Injection site erythema [Unknown]
  - Joint swelling [Unknown]
  - Alopecia [Unknown]
  - Headache [Unknown]
  - Dizziness [Unknown]
